FAERS Safety Report 6314022-7 (Version None)
Quarter: 2009Q3

REPORT INFORMATION
  Report Type: 
  Country: None (occurrence: None)
  Receive Date: 20090818
  Receipt Date: 20090814
  Transmission Date: 20100115
  Serious: Yes (Death)
  Sender: FDA-Public Use
  Company Number: BW-GILEAD-2009-0023714

PATIENT
  Age: 34 Year
  Sex: Female

DRUGS (8)
  1. TRUVADA [Suspect]
     Indication: HIV INFECTION
     Route: 048
     Dates: start: 20090612, end: 20090614
  2. EFAVIRENZ [Suspect]
     Indication: HIV INFECTION
     Dates: start: 20090612, end: 20090614
  3. FERROUS SULFATE TAB [Suspect]
  4. FOLIC ACID [Suspect]
  5. ISONIAZID [Concomitant]
     Indication: TUBERCULOSIS
     Dates: start: 20090601
  6. COTRIM [Concomitant]
     Dates: start: 20090601
  7. PYRIDOXINE [Concomitant]
     Indication: TUBERCULOSIS
     Dates: start: 20090601
  8. RIFAMPIN [Concomitant]
     Indication: TUBERCULOSIS
     Dates: start: 20090601

REACTIONS (1)
  - CEREBRAL HAEMORRHAGE [None]
